FAERS Safety Report 5351037-X (Version None)
Quarter: 2007Q2

REPORT INFORMATION
  Report Type: 
  Country: None (occurrence: None)
  Receive Date: 20070608
  Receipt Date: 20070530
  Transmission Date: 20071010
  Serious: Yes (Hospitalization)
  Sender: FDA-Public Use
  Company Number: ES-ABBOTT-07P-144-0358491-00

PATIENT
  Age: 16 Year
  Sex: Female

DRUGS (7)
  1. DEPAKENE [Interacting]
     Indication: EPILEPSY
     Dates: start: 20060901
  2. DEPAKENE [Interacting]
     Route: 048
  3. DEPAKENE [Interacting]
     Route: 048
  4. DEPAKENE [Suspect]
     Indication: EPILEPSY
  5. OMEPRAZOLE [Interacting]
     Indication: ABDOMINAL PAIN UPPER
  6. OMEPRAZOLE [Interacting]
     Indication: DIARRHOEA
  7. ETHOSUXIMIDE [Concomitant]
     Indication: DRUG USE FOR UNKNOWN INDICATION
     Route: 065
     Dates: start: 20060901

REACTIONS (6)
  - ABDOMINAL PAIN UPPER [None]
  - DIARRHOEA [None]
  - DRUG INEFFECTIVE [None]
  - DRUG INTERACTION [None]
  - EPILEPSY [None]
  - MEDICATION RESIDUE [None]
